FAERS Safety Report 9292057 (Version 2)
Quarter: 2013Q3

REPORT INFORMATION
  Report Type: Spontaneous
  Country: US (occurrence: US)
  Receive Date: 20130516
  Receipt Date: 20130709
  Transmission Date: 20140515
  Serious: No
  Sender: FDA-Public Use
  Company Number: US-BIOGENIDEC-2013BI041613

PATIENT
  Sex: Female

DRUGS (4)
  1. AVONEX [Suspect]
     Indication: MULTIPLE SCLEROSIS
     Route: 030
  2. TECFIDERA [Concomitant]
     Indication: MULTIPLE SCLEROSIS
  3. TYSABRI [Concomitant]
     Indication: MULTIPLE SCLEROSIS
     Route: 042
  4. TYSABRI [Concomitant]
     Indication: MULTIPLE SCLEROSIS
     Route: 042
     Dates: start: 20100416, end: 20120106

REACTIONS (7)
  - Motion sickness [Unknown]
  - Injection site pain [Recovered/Resolved]
  - Anxiety [Recovered/Resolved]
  - Nausea [Unknown]
  - Paraesthesia [Recovered/Resolved]
  - Malaise [Unknown]
  - Vomiting [Unknown]
